FAERS Safety Report 7085208-1 (Version None)
Quarter: 2010Q4

REPORT INFORMATION
  Report Type: 
  Country: None (occurrence: None)
  Receive Date: 20101105
  Receipt Date: 20101027
  Transmission Date: 20110411
  Serious: Yes (Hospitalization, Disabling)
  Sender: FDA-Public Use
  Company Number: US-ASTRAZENECA-2010SE51076

PATIENT
  Age: 50 Year
  Sex: Female
  Weight: 93 kg

DRUGS (4)
  1. ROSUVASTATIN [Suspect]
     Indication: DYSLIPIDAEMIA
     Route: 048
  2. VANCOMYCIN [Suspect]
     Indication: URINARY TRACT INFECTION
     Route: 042
     Dates: start: 20090301, end: 20090301
  3. NIASPAN [Suspect]
     Indication: DYSLIPIDAEMIA
     Route: 048
     Dates: start: 20090101, end: 20090301
  4. NIASPAN [Suspect]
     Route: 048
     Dates: start: 20100930

REACTIONS (11)
  - ANAEMIA [None]
  - BALANCE DISORDER [None]
  - CYSTITIS [None]
  - FALL [None]
  - HYPERCHOLESTEROLAEMIA [None]
  - HYPERGLYCAEMIA [None]
  - MUSCULAR WEAKNESS [None]
  - PAIN IN EXTREMITY [None]
  - PARONYCHIA [None]
  - RENAL FAILURE [None]
  - RHABDOMYOLYSIS [None]
